FAERS Safety Report 9694398 (Version 1)
Quarter: 2013Q4

REPORT INFORMATION
  Report Type: Spontaneous
  Country: US (occurrence: US)
  Receive Date: 20131118
  Receipt Date: 20131118
  Transmission Date: 20140711
  Serious: No
  Sender: FDA-Public Use
  Company Number: US-009507513-1311USA007146

PATIENT
  Sex: Female

DRUGS (2)
  1. A + D ORIGINAL OINTMENT [Suspect]
     Indication: DERMATITIS DIAPER
     Dosage: UNK, UNKNOWN
     Route: 061
  2. A + D ORIGINAL OINTMENT [Suspect]
     Indication: ERYTHEMA

REACTIONS (1)
  - Drug ineffective [Unknown]
